FAERS Safety Report 9946832 (Version 1)
Quarter: 2014Q1

REPORT INFORMATION
  Report Type: Report from Study
  Country: US (occurrence: US)
  Receive Date: 20140303
  Receipt Date: 20140303
  Transmission Date: 20141002
  Serious: No
  Sender: FDA-Public Use
  Company Number: US-ABBVIE-13P-163-1063209-00

PATIENT
  Age: 18 Year
  Sex: Male

DRUGS (3)
  1. HUMIRA [Suspect]
     Indication: CROHN^S DISEASE
     Dates: end: 201209
  2. HUMIRA [Suspect]
     Dates: start: 201209
  3. ANTIBIOTICS [Concomitant]
     Indication: ACNE

REACTIONS (3)
  - Wrong technique in drug usage process [Unknown]
  - Circumstance or information capable of leading to medication error [Unknown]
  - Acne [Unknown]
